FAERS Safety Report 6611699-3 (Version None)
Quarter: 2010Q1

REPORT INFORMATION
  Report Type: 
  Country: None (occurrence: None)
  Receive Date: 20100301
  Receipt Date: 20100301
  Transmission Date: 20100710
  Serious: Yes (Other)
  Sender: FDA-Public Use
  Company Number: None

PATIENT
  Sex: Female
  Weight: 49.8957 kg

DRUGS (4)
  1. CARBAMAZEPINE [Suspect]
     Indication: BIPOLAR DISORDER
     Dosage: TAKE ONE AND ONE-HALF TABLETS TWICE A DAY
     Dates: start: 20060401
  2. FLUDROCORTISONE [Concomitant]
  3. METOCLOPRAMIDE HYDROCHLORIDE [Concomitant]
  4. SIMVASTATIN [Concomitant]

REACTIONS (3)
  - DRUG LEVEL DECREASED [None]
  - MANIA [None]
  - PRODUCT QUALITY ISSUE [None]
